FAERS Safety Report 13390327 (Version 3)
Quarter: 2017Q2

REPORT INFORMATION
  Report Type: Spontaneous
  Country: JP (occurrence: JP)
  Receive Date: 20170331
  Receipt Date: 20170602
  Transmission Date: 20170830
  Serious: Yes (Death, Other)
  Sender: FDA-Public Use
  Company Number: JP-009507513-1703JPN014318

PATIENT
  Age: 24 Year
  Sex: Female

DRUGS (2)
  1. INTERFERON BETA NOS [Suspect]
     Active Substance: INTERFERON BETA
     Indication: ANAPLASTIC ASTROCYTOMA
     Dosage: UNK, EVERY 2 WEEKS
  2. TEMOZOLOMIDE. [Suspect]
     Active Substance: TEMOZOLOMIDE
     Indication: ANAPLASTIC ASTROCYTOMA
     Dosage: 75 MG/M2 BODY SURFACE PER DAY
     Route: 048

REACTIONS (2)
  - Adverse event [Unknown]
  - Anaplastic astrocytoma [Fatal]
